FAERS Safety Report 10873538 (Version 1)
Quarter: 2015Q1

REPORT INFORMATION
  Report Type: Spontaneous
  Country: US (occurrence: US)
  Receive Date: 20150227
  Receipt Date: 20150227
  Transmission Date: 20150721
  Serious: Yes (Other)
  Sender: FDA-Public Use
  Company Number: US-BEH-2015049073

PATIENT
  Sex: Female
  Weight: 49 kg

DRUGS (69)
  1. VENOFER [Concomitant]
     Active Substance: IRON SUCROSE
     Dosage: 100 MG/5ML VIAL
  2. VITAMIN D2 [Concomitant]
     Active Substance: ERGOCALCIFEROL
     Route: 048
  3. NYSTATIN. [Concomitant]
     Active Substance: NYSTATIN
     Dosage: 500K UNIT
     Route: 048
  4. DOXYCYCLINE. [Concomitant]
     Active Substance: DOXYCYCLINE
     Route: 048
  5. BUDESONIDE. [Concomitant]
     Active Substance: BUDESONIDE
     Dosage: 0.5 MG/2 ML SUSPENSION
  6. ISOTON GENTAMYCIN [Concomitant]
     Dosage: 80 MG/100 ML
  7. ORAVIG [Concomitant]
     Active Substance: MICONAZOLE
     Route: 048
  8. LIPITOR [Concomitant]
     Active Substance: ATORVASTATIN CALCIUM
     Route: 048
  9. NEXIUM [Concomitant]
     Active Substance: ESOMEPRAZOLE MAGNESIUM
     Dosage: DR
  10. ZYRTEC [Concomitant]
     Active Substance: CETIRIZINE HYDROCHLORIDE
     Dosage: ODT
  11. CEFPODOXIME [Concomitant]
     Active Substance: CEFPODOXIME
     Route: 048
  12. DURAGESIC [Concomitant]
     Active Substance: FENTANYL
     Dosage: 100 MCG/HR
     Route: 062
  13. ULTRAM [Concomitant]
     Active Substance: TRAMADOL HYDROCHLORIDE
     Dosage: ER
     Route: 048
  14. XOLAIR [Concomitant]
     Active Substance: OMALIZUMAB
     Dosage: 150 MG VIAL
  15. NEURONTIN [Concomitant]
     Active Substance: GABAPENTIN
     Route: 048
  16. DIPHENHYDRAMINE [Concomitant]
     Active Substance: DIPHENHYDRAMINE
  17. POTASSIUM CL [Concomitant]
     Active Substance: POTASSIUM CHLORIDE
     Route: 048
  18. ADVAIR HFA [Concomitant]
     Active Substance: FLUTICASONE PROPIONATE\SALMETEROL XINAFOATE
     Dosage: 500-50 DISKUS
  19. CLIMARA [Concomitant]
     Active Substance: ESTRADIOL
     Dosage: 0.05 MG/DAY
     Route: 062
  20. GENTAMYCIN [Concomitant]
     Active Substance: GENTAMICIN
     Route: 045
  21. FLUCONAZOLE. [Concomitant]
     Active Substance: FLUCONAZOLE
  22. VANCOMYCIN HCL [Concomitant]
     Active Substance: VANCOMYCIN HYDROCHLORIDE
     Dosage: 5 GM VIAL
  23. RANITIDINE [Concomitant]
     Active Substance: RANITIDINE\RANITIDINE HYDROCHLORIDE
     Route: 048
  24. SORBITOL. [Concomitant]
     Active Substance: SORBITOL
     Dosage: 70% SOLUTION
  25. DICLOFENAC [Concomitant]
     Active Substance: DICLOFENAC
     Dosage: DR
     Route: 048
  26. DHEA [Concomitant]
     Active Substance: DEHYDROEPIANDROSTERONE-3-SULFATE SODIUM
     Dosage: POWDER
  27. ACTEMRA [Concomitant]
     Active Substance: TOCILIZUMAB
     Dosage: 200 MG/10 ML VIAL
  28. PANCREAZE [Concomitant]
     Active Substance: PANCRELIPASE
     Dosage: 10.5K-25K; DR
     Route: 048
  29. ALBUTEROL SULFATE. [Concomitant]
     Active Substance: ALBUTEROL SULFATE
  30. INVANZ [Concomitant]
     Active Substance: ERTAPENEM SODIUM
     Dosage: 1 GM VIAL
  31. LMX [Concomitant]
     Active Substance: LIDOCAINE
  32. PYRIDIUM [Concomitant]
     Active Substance: PHENAZOPYRIDINE
     Route: 048
  33. SOLU-CORTEF [Concomitant]
     Active Substance: HYDROCORTISONE SODIUM SUCCINATE
     Dosage: 100 MG VIAL
  34. OXYCODONE [Concomitant]
     Active Substance: OXYCODONE
     Route: 048
  35. NORMAL SALINE [Concomitant]
     Active Substance: SODIUM CHLORIDE
     Dosage: FLUSH
  36. FLOMAX [Concomitant]
     Active Substance: TAMSULOSIN HYDROCHLORIDE
     Route: 048
  37. FLEXERIL [Concomitant]
     Active Substance: CYCLOBENZAPRINE HYDROCHLORIDE
     Route: 048
  38. PLAVIX [Concomitant]
     Active Substance: CLOPIDOGREL BISULFATE
     Route: 048
  39. SOLU-MEDROL [Concomitant]
     Active Substance: METHYLPREDNISOLONE SODIUM SUCCINATE
     Dosage: 2 GM VIAL
  40. PREDNISONE. [Concomitant]
     Active Substance: PREDNISONE
     Route: 048
  41. RECLAST [Concomitant]
     Active Substance: ZOLEDRONIC ACID
  42. VOLTAREN [Concomitant]
     Active Substance: DICLOFENAC SODIUM
     Dosage: (GRAM)
  43. AMPHOTERICIN B. [Concomitant]
     Active Substance: AMPHOTERICIN B
     Dosage: 50 MG VIAL
  44. LOVENOX [Concomitant]
     Active Substance: ENOXAPARIN SODIUM
     Dosage: PRE-FILLED SYRINGE
  45. CARVEDILOL. [Concomitant]
     Active Substance: CARVEDILOL
     Route: 048
  46. BISACODYL. [Concomitant]
     Active Substance: BISACODYL
     Dosage: DR
     Route: 048
  47. ATROVENT [Concomitant]
     Active Substance: IPRATROPIUM BROMIDE
     Route: 055
  48. ACTIQ [Concomitant]
     Active Substance: FENTANYL CITRATE
     Route: 048
  49. ZYVOX [Concomitant]
     Active Substance: LINEZOLID
     Route: 048
  50. SINGULAIR [Concomitant]
     Active Substance: MONTELUKAST SODIUM
     Route: 048
  51. ZOFRAN [Concomitant]
     Active Substance: ONDANSETRON HYDROCHLORIDE
  52. BETHANECHOL [Concomitant]
     Active Substance: BETHANECHOL
     Route: 048
  53. COLACE [Concomitant]
     Active Substance: DOCUSATE SODIUM
  54. LEVAQUIN [Concomitant]
     Active Substance: LEVOFLOXACIN
     Route: 048
  55. MUPIROCIN. [Concomitant]
     Active Substance: MUPIROCIN
     Dosage: OINTMENT
  56. LIDOCAINE PRILOCAINE [Concomitant]
  57. EPIPEN [Concomitant]
     Active Substance: EPINEPHRINE
  58. TERCONAZOLE. [Concomitant]
     Active Substance: TERCONAZOLE
     Route: 054
  59. CYANOCOBALAMIN. [Concomitant]
     Active Substance: CYANOCOBALAMIN
     Dosage: 1000 MCG/ML
  60. HIZENTRA [Suspect]
     Active Substance: HUMAN IMMUNOGLOBULIN G
     Indication: IMMUNODEFICIENCY COMMON VARIABLE
     Dosage: 2 GM
     Route: 058
  61. ELMIRON [Concomitant]
     Active Substance: PENTOSAN POLYSULFATE SODIUM
     Route: 048
  62. ACETAMINOPHEN. [Concomitant]
     Active Substance: ACETAMINOPHEN
  63. NYSTATIN. [Concomitant]
     Active Substance: NYSTATIN
     Dosage: 100,000 UNITS/ML SUSPENSION
  64. CLOTRIMAZOLE. [Concomitant]
     Active Substance: CLOTRIMAZOLE
     Dosage: TROCHE
  65. NASONEX [Concomitant]
     Active Substance: MOMETASONE FUROATE
  66. ASPIRIN. [Concomitant]
     Active Substance: ASPIRIN
     Route: 048
  67. FLUDROCORTISONE [Concomitant]
     Active Substance: FLUDROCORTISONE
     Route: 048
  68. RIFAMPIN. [Concomitant]
     Active Substance: RIFAMPIN
     Route: 048
  69. LIDODERM [Concomitant]
     Active Substance: LIDOCAINE
     Dosage: 5%
     Route: 062

REACTIONS (1)
  - Gastrointestinal haemorrhage [Unknown]
